FAERS Safety Report 5856266-4 (Version None)
Quarter: 2008Q3

REPORT INFORMATION
  Report Type: 
  Country: None (occurrence: None)
  Receive Date: 20080825
  Receipt Date: 20080818
  Transmission Date: 20090109
  Serious: Yes (Other)
  Sender: FDA-Public Use
  Company Number: B0524700A

PATIENT
  Age: 19 Month
  Sex: Female

DRUGS (1)
  1. AUGMENTIN '125' [Suspect]
     Indication: TONSILLITIS
     Route: 048
     Dates: start: 20080428, end: 20080508

REACTIONS (6)
  - ANOREXIA [None]
  - NONSPECIFIC REACTION [None]
  - PYREXIA [None]
  - STREPTOCOCCAL INFECTION [None]
  - TONSILLITIS [None]
  - TRANSAMINASES INCREASED [None]
